FAERS Safety Report 7593394-X (Version None)
Quarter: 2011Q3

REPORT INFORMATION
  Report Type: 
  Country: None (occurrence: None)
  Receive Date: 20110706
  Receipt Date: 20110630
  Transmission Date: 20111222
  Serious: Yes (Life-Threatening)
  Sender: FDA-Public Use
  Company Number: US-MERCK-1105USA02904

PATIENT
  Sex: Male

DRUGS (2)
  1. TRUVADA [Concomitant]
     Route: 065
  2. ISENTRESS [Suspect]
     Indication: HIV INFECTION
     Route: 048
     Dates: start: 20110401, end: 20110401

REACTIONS (2)
  - HEPATITIS C [None]
  - HEPATIC ENZYME INCREASED [None]
